FAERS Safety Report 8613267-0 (Version None)
Quarter: 2012Q3

REPORT INFORMATION
  Report Type: 
  Country: None (occurrence: None)
  Receive Date: 20120822
  Receipt Date: 20120718
  Transmission Date: 20120928
  Serious: No
  Sender: FDA-Public Use
  Company Number: US-009507513-2012SP026921

PATIENT

DRUGS (1)
  1. PROVENTIL [Suspect]
     Indication: ASTHMA
     Dosage: 1 OR 2 TIMES A DAY/2 ACTUATIOS EACH TIME
     Dates: start: 20100101

REACTIONS (2)
  - ASTHMA [None]
  - DRUG DOSE OMISSION [None]
